FAERS Safety Report 15060116 (Version 5)
Quarter: 2018Q4

REPORT INFORMATION
  Report Type: Spontaneous
  Country: US (occurrence: US)
  Receive Date: 20180625
  Receipt Date: 20181103
  Transmission Date: 20190204
  Serious: No
  Sender: FDA-Public Use
  Company Number: US-UNITED THERAPEUTICS-UNT-2018-008049

PATIENT
  Sex: Female
  Weight: 62.59 kg

DRUGS (28)
  1. ORENITRAM [Suspect]
     Active Substance: TREPROSTINIL
     Dosage: 1.75 MG, TID
     Route: 048
  2. ORENITRAM [Suspect]
     Active Substance: TREPROSTINIL
     Dosage: 2.5 MG, TID
     Route: 048
  3. ORENITRAM [Suspect]
     Active Substance: TREPROSTINIL
     Dosage: UNK
     Route: 048
  4. LETAIRIS [Suspect]
     Active Substance: AMBRISENTAN
     Dosage: UNK
     Route: 065
  5. ORENITRAM [Suspect]
     Active Substance: TREPROSTINIL
     Dosage: UNK
     Route: 048
  6. ORENITRAM [Suspect]
     Active Substance: TREPROSTINIL
     Dosage: 1.25 MG, TID
     Route: 048
  7. ORENITRAM [Suspect]
     Active Substance: TREPROSTINIL
     Dosage: UNK
     Route: 048
     Dates: start: 20180530
  8. ORENITRAM [Suspect]
     Active Substance: TREPROSTINIL
     Dosage: 1.875 MG, TID
     Route: 048
  9. ORENITRAM [Suspect]
     Active Substance: TREPROSTINIL
     Indication: PULMONARY ARTERIAL HYPERTENSION
     Dosage: 1.375 MG, TID
     Route: 048
     Dates: start: 20180413
  10. ORENITRAM [Suspect]
     Active Substance: TREPROSTINIL
     Dosage: 1.25 MG, TID
     Route: 048
  11. ORENITRAM [Suspect]
     Active Substance: TREPROSTINIL
     Dosage: 1.75 MG, TID
     Route: 048
  12. ORENITRAM [Suspect]
     Active Substance: TREPROSTINIL
     Dosage: 1.875 MG, TID
     Route: 048
  13. ORENITRAM [Suspect]
     Active Substance: TREPROSTINIL
     Indication: PULMONARY ARTERIAL HYPERTENSION
     Dosage: 1.375 MG, TID
     Route: 048
     Dates: start: 20180413
  14. LETAIRIS [Suspect]
     Active Substance: AMBRISENTAN
     Indication: PRODUCT USED FOR UNKNOWN INDICATION
     Dosage: 10 MG, QD
     Route: 065
     Dates: start: 20180320
  15. LETAIRIS [Suspect]
     Active Substance: AMBRISENTAN
     Dosage: UNK
     Route: 065
  16. ORENITRAM [Suspect]
     Active Substance: TREPROSTINIL
     Dosage: UNK
     Route: 048
     Dates: start: 20180530
  17. ORENITRAM [Suspect]
     Active Substance: TREPROSTINIL
     Dosage: 1.25 MG, TID
     Route: 048
  18. LETAIRIS [Suspect]
     Active Substance: AMBRISENTAN
     Dosage: UNK
     Route: 065
  19. ORENITRAM [Suspect]
     Active Substance: TREPROSTINIL
     Indication: PULMONARY ARTERIAL HYPERTENSION
     Dosage: 1.375 MG, TID
     Route: 048
     Dates: start: 20180413
  20. ORENITRAM [Suspect]
     Active Substance: TREPROSTINIL
     Dosage: UNK
     Route: 048
     Dates: start: 20180530
  21. ORENITRAM [Suspect]
     Active Substance: TREPROSTINIL
     Dosage: UNK
     Route: 048
  22. ORENITRAM [Suspect]
     Active Substance: TREPROSTINIL
     Dosage: 1.875 MG, TID
     Route: 048
  23. ORENITRAM [Suspect]
     Active Substance: TREPROSTINIL
     Dosage: 2.5 MG, TID
     Route: 048
  24. ORENITRAM [Suspect]
     Active Substance: TREPROSTINIL
     Dosage: UNK
     Route: 048
  25. ORENITRAM [Suspect]
     Active Substance: TREPROSTINIL
     Dosage: 2.5 MG, TID
     Route: 048
  26. ORENITRAM [Suspect]
     Active Substance: TREPROSTINIL
     Dosage: UNK
     Route: 048
  27. ORENITRAM [Suspect]
     Active Substance: TREPROSTINIL
     Dosage: UNK
     Route: 048
  28. ORENITRAM [Suspect]
     Active Substance: TREPROSTINIL
     Dosage: 1.75 MG, TID
     Route: 048

REACTIONS (5)
  - Peripheral swelling [Not Recovered/Not Resolved]
  - Joint swelling [Not Recovered/Not Resolved]
  - Pain [Not Recovered/Not Resolved]
  - Diarrhoea [Not Recovered/Not Resolved]
  - Blood pressure abnormal [Unknown]

NARRATIVE: CASE EVENT DATE: 2018
